FAERS Safety Report 22614843 (Version 1)
Quarter: 2023Q2

REPORT INFORMATION
  Report Type: Spontaneous
  Country: US (occurrence: US)
  Receive Date: 20230619
  Receipt Date: 20230619
  Transmission Date: 20230721
  Serious: No
  Sender: FDA-Public Use
  Company Number: US-TARO PHARMACEUTICALS USA INC.-2022TAR00659

PATIENT

DRUGS (1)
  1. DICLOFENAC SODIUM [Suspect]
     Active Substance: DICLOFENAC SODIUM
     Indication: Hyperkeratosis
     Dosage: UNK
     Route: 065
     Dates: start: 20220429

REACTIONS (3)
  - Swelling [Unknown]
  - Pruritus [Unknown]
  - Weight increased [Unknown]
